FAERS Safety Report 4401505-X (Version None)
Quarter: 2004Q3

REPORT INFORMATION
  Report Type: 
  Country: None (occurrence: None)
  Receive Date: 20040719
  Receipt Date: 20040614
  Transmission Date: 20050211
  Serious: Yes (Congenital Anomaly)
  Sender: FDA-Public Use
  Company Number: 200416101GDDC

PATIENT
  Sex: Female
  Weight: 2.92 kg

DRUGS (3)
  1. ENOXAPARIN SODIUM [Suspect]
     Indication: DEEP VEIN THROMBOSIS
     Dosage: DOSE: UNK
     Route: 058
     Dates: start: 20031201, end: 20031201
  2. WARFARIN SODIUM [Suspect]
     Indication: EMBOLISM VENOUS
     Dosage: DOSE: UNK
     Route: 064
     Dates: start: 20030501, end: 20031101
  3. UNFRACTIONATED HEPARIN [Concomitant]
     Indication: EMBOLISM VENOUS
     Dosage: DOSE: 15,000
     Route: 058
     Dates: start: 20031201

REACTIONS (3)
  - CONGENITAL HYDROCEPHALUS [None]
  - DANDY-WALKER SYNDROME [None]
  - DRUG EXPOSURE DURING PREGNANCY [None]
